FAERS Safety Report 25149661 (Version 1)
Quarter: 2025Q2

REPORT INFORMATION
  Report Type: Spontaneous
  Country: US (occurrence: None)
  Receive Date: 20250401
  Receipt Date: 20250401
  Transmission Date: 20250717
  Serious: Yes (Death)
  Sender: FDA-CTU
  Company Number: None

PATIENT
  Age: 65 Year
  Sex: Male

DRUGS (1)
  1. MYTESI [Suspect]
     Active Substance: CROFELEMER
     Indication: Diarrhoea
     Dosage: BID ORAL ?
     Route: 048
     Dates: start: 20231212

REACTIONS (3)
  - Hypophagia [None]
  - Weight decreased [None]
  - Dysphagia [None]

NARRATIVE: CASE EVENT DATE: 20250328
